FAERS Safety Report 24317323 (Version 2)
Quarter: 2024Q4

REPORT INFORMATION
  Report Type: Report from Study
  Country: MX (occurrence: MX)
  Receive Date: 20240913
  Receipt Date: 20241004
  Transmission Date: 20250115
  Serious: Yes (Hospitalization)
  Sender: ROCHE
  Company Number: MX-ROCHE-10000079530

PATIENT
  Age: 42 Year
  Sex: Female
  Weight: 70 kg

DRUGS (1)
  1. OCREVUS [Suspect]
     Active Substance: OCRELIZUMAB
     Indication: Multiple sclerosis
     Route: 042
     Dates: start: 20190606

REACTIONS (4)
  - Balance disorder [Not Recovered/Not Resolved]
  - Abdominal adhesions [Recovered/Resolved]
  - Renal disorder [Recovered/Resolved]
  - Hysterectomy [Recovered/Resolved]

NARRATIVE: CASE EVENT DATE: 20240201
